FAERS Safety Report 4789170-3 (Version None)
Quarter: 2005Q4

REPORT INFORMATION
  Report Type: 
  Country: None (occurrence: None)
  Receive Date: 20051003
  Receipt Date: 20050705
  Transmission Date: 20060501
  Serious: No
  Sender: FDA-Public Use
  Company Number: SU-2005-003367

PATIENT
  Age: 55 Year
  Sex: Female
  Weight: 83.4619 kg

DRUGS (13)
  1. BENICAR HCT [Suspect]
     Indication: HYPERTENSION
     Dosage: 20.125 MG QD PO
     Route: 048
     Dates: start: 20050313, end: 20050301
  2. BENICAR [Suspect]
     Indication: HYPERTENSION
     Dosage: 20 MG QD PO
     Route: 048
     Dates: start: 20050301, end: 20050630
  3. WELLBUTRIN [Concomitant]
  4. NECON [Concomitant]
  5. XANAX [Concomitant]
  6. GLUCOSAMINE CHONDROITIN [Concomitant]
  7. ASCORBIC ACID [Concomitant]
  8. IBUPROFEN [Concomitant]
  9. VITAMIN E [Concomitant]
  10. BETA CAROTENE [Concomitant]
  11. ASPIRIN [Concomitant]
  12. RED CLOVER [Concomitant]
  13. CITRACAL [Concomitant]

REACTIONS (4)
  - DIZZINESS [None]
  - OEDEMA PERIPHERAL [None]
  - TREMOR [None]
  - VERTIGO [None]
